FAERS Safety Report 19306673 (Version 1)
Quarter: 2021Q2

REPORT INFORMATION
  Report Type: Spontaneous
  Country: US (occurrence: US)
  Receive Date: 20210525
  Receipt Date: 20210525
  Transmission Date: 20210717
  Serious: Yes (Death)
  Sender: FDA-Public Use
  Company Number: None

PATIENT
  Age: 60 Year
  Sex: Female

DRUGS (13)
  1. MORPHINE SUL ER [Concomitant]
  2. FENTANYL HR [Concomitant]
  3. CAPECITABINE 500MG TAB [Suspect]
     Active Substance: CAPECITABINE
     Indication: BREAST CANCER FEMALE
     Dosage: ?          OTHER ROUTE:PO?7D ON?7D OFF?
     Dates: start: 20210420, end: 20210517
  4. ALBUTEROL HFA [Concomitant]
     Active Substance: ALBUTEROL SULFATE
  5. AMOX/K CLAV [Concomitant]
     Active Substance: AMOXICILLIN\CLAVULANATE POTASSIUM
  6. MIDODRINE [Concomitant]
     Active Substance: MIDODRINE
  7. HYDROMORPHON [Concomitant]
     Active Substance: HYDROMORPHONE
  8. METHYLPRED [Concomitant]
     Active Substance: METHYLPREDNISOLONE
  9. ONDANSETRON [Concomitant]
     Active Substance: ONDANSETRON
  10. OXYBUTYNIN ER [Concomitant]
     Active Substance: OXYBUTYNIN
  11. ELIQUIS [Concomitant]
     Active Substance: APIXABAN
  12. DESMOPRESSIN [Concomitant]
     Active Substance: DESMOPRESSIN
  13. NARCAN [Concomitant]
     Active Substance: NALOXONE HYDROCHLORIDE

REACTIONS (1)
  - Death [None]

NARRATIVE: CASE EVENT DATE: 20210517
